FAERS Safety Report 20598912 (Version 1)
Quarter: 2022Q1

REPORT INFORMATION
  Report Type: Spontaneous
  Country: US (occurrence: US)
  Receive Date: 20220315
  Receipt Date: 20220315
  Transmission Date: 20220423
  Serious: Yes (Other)
  Sender: FDA-Public Use
  Company Number: US-BRISTOL-MYERS SQUIBB COMPANY-BMS-2022-038375

PATIENT
  Age: 73 Year
  Sex: Female
  Weight: 59.8 kg

DRUGS (8)
  1. ORENCIA [Suspect]
     Active Substance: ABATACEPT
     Indication: Polymyositis
     Dosage: 125MG/ML ONCE WEEKLY ON THURSDAY
     Route: 058
     Dates: start: 2019
  2. ORENCIA [Suspect]
     Active Substance: ABATACEPT
     Indication: Polymyositis
     Dosage: 125MG/ML ONCE WEEKLY ON THURSDAY
     Route: 058
     Dates: start: 2019
  3. ORENCIA [Suspect]
     Active Substance: ABATACEPT
     Indication: Dermatomyositis
  4. ORENCIA [Suspect]
     Active Substance: ABATACEPT
     Indication: Dermatomyositis
  5. VITAMINS NOS [Concomitant]
     Active Substance: VITAMINS
     Indication: Product used for unknown indication
     Route: 065
  6. CYANOCOBALAMIN [Concomitant]
     Active Substance: CYANOCOBALAMIN
     Indication: Product used for unknown indication
     Route: 065
  7. VITAMIN D NOS [Concomitant]
     Active Substance: VITAMIN D NOS
     Indication: Product used for unknown indication
     Route: 065
  8. HYDROXYCHLOROQUINE [Concomitant]
     Active Substance: HYDROXYCHLOROQUINE
     Indication: Product used for unknown indication
     Dosage: 200 MG ONCE DAILY
     Route: 065

REACTIONS (3)
  - Retinal detachment [Unknown]
  - Dermatomyositis [Unknown]
  - Off label use [Unknown]

NARRATIVE: CASE EVENT DATE: 20220223
